FAERS Safety Report 22976555 (Version 2)
Quarter: 2023Q4

REPORT INFORMATION
  Report Type: Report from Study
  Country: RO (occurrence: RO)
  Receive Date: 20230925
  Receipt Date: 20231006
  Transmission Date: 20240110
  Serious: Yes (Other)
  Sender: FDA-Public Use
  Company Number: RO-TEVA-2023-RO-2928427

PATIENT
  Age: 50 Year
  Sex: Male

DRUGS (2)
  1. CARBOPLATIN [Suspect]
     Active Substance: CARBOPLATIN
     Indication: Lung adenocarcinoma stage IV
     Dosage: 6 CYCLES CHEMOTHERAPY
     Route: 065
     Dates: start: 201706, end: 201801
  2. GEMCITABINE [Suspect]
     Active Substance: GEMCITABINE
     Indication: Lung adenocarcinoma stage IV
     Dosage: 6 CYCLES OF CHEMOTHERAPY
     Route: 065
     Dates: start: 201706, end: 201801

REACTIONS (1)
  - Haematotoxicity [Recovered/Resolved]
